FAERS Safety Report 16366254 (Version 1)
Quarter: 2019Q3

REPORT INFORMATION
  Report Type: Spontaneous
  Country: US (occurrence: US)
  Receive Date: 20190528
  Receipt Date: 20190528
  Transmission Date: 20191004
  Serious: Yes (Hospitalization)
  Sender: FDA-Public Use
  Company Number: None

PATIENT
  Age: 63 Year
  Sex: Female

DRUGS (10)
  1. PANTOPRAZOLE 40MG TABLET [Concomitant]
  2. HYOSCYAMINE 0.375 MG TABLET ER [Concomitant]
  3. FOLIC ACID TABLET 1 MG [Concomitant]
  4. XELJANZ [Suspect]
     Active Substance: TOFACITINIB CITRATE
     Indication: RHEUMATOID ARTHRITIS
     Route: 048
     Dates: start: 20150824
  5. CIPROFLOXACIN 500MG TABLET [Concomitant]
     Dates: start: 20190525
  6. ATORVASTATIN 10 MG TABLET [Concomitant]
  7. METRONIDAZOLE TABLET 500MG [Concomitant]
  8. CYCLOBENZAPRINE 10 MG TABLET [Concomitant]
  9. HYDROXYCHLOROQUINE 200MG TABLET [Concomitant]
     Active Substance: HYDROXYCHLOROQUINE
  10. METOPROLOL SUCCINATE 25MG TABLET [Concomitant]

REACTIONS (2)
  - Malaise [None]
  - Infection [None]

NARRATIVE: CASE EVENT DATE: 20190522
